FAERS Safety Report 5599418-3 (Version None)
Quarter: 2008Q1

REPORT INFORMATION
  Report Type: 
  Country: None (occurrence: None)
  Receive Date: 20080122
  Receipt Date: 20080109
  Transmission Date: 20080703
  Serious: Yes (Death)
  Sender: FDA-Public Use
  Company Number: US-PFIZER INC-2008002998

PATIENT
  Age: 49 Year
  Sex: Male

DRUGS (9)
  1. GABAPENTIN [Suspect]
     Route: 048
  2. AMLODIPINE [Suspect]
     Route: 048
  3. ASPIRIN [Suspect]
     Route: 048
  4. VENLAFAXINE HCL [Suspect]
     Route: 048
  5. DIAZEPAM [Suspect]
     Route: 048
  6. IMIPRAMINE [Suspect]
     Route: 048
  7. BETA BLOCKING AGENTS [Suspect]
     Route: 048
  8. LISINOPRIL [Suspect]
     Route: 048
  9. HYDROCHLOROTHIAZIDE [Suspect]
     Route: 048

REACTIONS (1)
  - COMPLETED SUICIDE [None]
